FAERS Safety Report 6822963-7 (Version None)
Quarter: 2010Q3

REPORT INFORMATION
  Report Type: 
  Country: None (occurrence: None)
  Receive Date: 20100708
  Receipt Date: 20100629
  Transmission Date: 20110219
  Serious: Yes (Other)
  Sender: FDA-Public Use
  Company Number: A0866162A

PATIENT
  Sex: Female
  Weight: 56 kg

DRUGS (2)
  1. SERETIDE [Suspect]
     Indication: ASTHMA
     Dosage: 1PUFF VARIABLE DOSE
     Route: 055
     Dates: start: 20080101
  2. ATROVENT [Concomitant]
     Dosage: 5ML THREE TIMES PER DAY
     Route: 055
     Dates: start: 20080101

REACTIONS (6)
  - DRUG ADMINISTRATION ERROR [None]
  - GLOSSODYNIA [None]
  - MACROGLOSSIA [None]
  - OROPHARYNGEAL DISCOMFORT [None]
  - OROPHARYNGEAL PAIN [None]
  - PRODUCT QUALITY ISSUE [None]
